FAERS Safety Report 8094640-9 (Version None)
Quarter: 2012Q1

REPORT INFORMATION
  Report Type: 
  Country: None (occurrence: None)
  Receive Date: 20120131
  Receipt Date: 20111107
  Transmission Date: 20120608
  Serious: No
  Sender: FDA-Public Use
  Company Number: US-ABBOTT-11P-163-0872270-00

PATIENT
  Age: 72 Year
  Sex: Male
  Weight: 54.48 kg

DRUGS (1)
  1. CREON [Suspect]
     Indication: PANCREATITIS CHRONIC
     Dosage: 4 CAPS WITH EA MEAL, 1-2CAPS WITH SNACKS

REACTIONS (6)
  - DIARRHOEA [None]
  - APATHY [None]
  - FREQUENT BOWEL MOVEMENTS [None]
  - GASTROINTESTINAL PAIN [None]
  - DIZZINESS [None]
  - ASTHENIA [None]
